FAERS Safety Report 5156763-3 (Version None)
Quarter: 2006Q4

REPORT INFORMATION
  Report Type: 
  Country: None (occurrence: None)
  Receive Date: 20061115
  Receipt Date: 20061031
  Transmission Date: 20070319
  Serious: Yes (Hospitalization)
  Sender: FDA-Public Use
  Company Number: 15095

PATIENT
  Age: 64 Year
  Sex: Male
  Weight: 71.9 kg

DRUGS (24)
  1. FLUOROURACIL [Suspect]
     Indication: COLORECTAL CANCER METASTATIC
     Dosage: 400 MG/M2 PER CYCLE IV
     Route: 042
     Dates: start: 20060920, end: 20060920
  2. FLUOROURACIL [Suspect]
     Indication: METASTASES TO LIVER
     Dosage: 400 MG/M2 PER CYCLE IV
     Route: 042
     Dates: start: 20060920, end: 20060920
  3. FLUOROURACIL [Suspect]
     Indication: COLORECTAL CANCER METASTATIC
     Dosage: 2400 MG/M2 PER CYCLE IV
     Route: 042
     Dates: start: 20060920, end: 20060920
  4. FLUOROURACIL [Suspect]
     Indication: METASTASES TO LIVER
     Dosage: 2400 MG/M2 PER CYCLE IV
     Route: 042
     Dates: start: 20060920, end: 20060920
  5. LEUCOVORIN [Suspect]
     Indication: COLORECTAL CANCER METASTATIC
     Dosage: 400 MG/M2 PER CYCLE IV
     Route: 042
     Dates: start: 20060920, end: 20060920
  6. LEUCOVORIN [Suspect]
     Indication: METASTASES TO LIVER
     Dosage: 400 MG/M2 PER CYCLE IV
     Route: 042
     Dates: start: 20060920, end: 20060920
  7. OXALIPLATIN [Suspect]
     Indication: COLORECTAL CANCER METASTATIC
     Dosage: 85 MG/KG PER CYCLE IV
     Route: 042
     Dates: start: 20060920, end: 20060920
  8. OXALIPLATIN [Suspect]
     Indication: METASTASES TO LIVER
     Dosage: 85 MG/KG PER CYCLE IV
     Route: 042
     Dates: start: 20060920, end: 20060920
  9. BEVACIZUMAB [Suspect]
     Indication: COLORECTAL CANCER METASTATIC
     Dosage: 5 MG/KG PER CYCLE IV
     Route: 042
     Dates: start: 20060920, end: 20060920
  10. BEVACIZUMAB [Suspect]
     Indication: METASTASES TO LIVER
     Dosage: 5 MG/KG PER CYCLE IV
     Route: 042
     Dates: start: 20060920, end: 20060920
  11. ASCORBIC ACID [Concomitant]
  12. CEPSAICIN [Concomitant]
  13. DEXAMETHASONE TAB [Concomitant]
  14. DOCUSATE SODIUM [Concomitant]
  15. LACTULOSE [Concomitant]
  16. ACETAMINOPHEN [Concomitant]
  17. SIMETHICONE [Concomitant]
  18. AMIODARONE HCL [Concomitant]
  19. ACETYLSALICYLIC ACID SRT [Concomitant]
  20. FLUVASTATIN [Concomitant]
  21. HYDROCHLOROTHIAZIDE [Concomitant]
  22. IPRATROPIUM BROMIDE [Concomitant]
  23. LEVALBUTEROL HCL [Concomitant]
  24. SALMETEROL [Concomitant]

REACTIONS (3)
  - NEUTROPENIA [None]
  - PYREXIA [None]
  - WHITE BLOOD CELL COUNT DECREASED [None]
